FAERS Safety Report 11146596 (Version 1)
Quarter: 2015Q2

REPORT INFORMATION
  Report Type: Spontaneous
  Country: NL (occurrence: NL)
  Receive Date: 20150528
  Receipt Date: 20150528
  Transmission Date: 20150821
  Serious: Yes (Hospitalization)
  Sender: FDA-Public Use
  Company Number: NL-OTSUKA PHARMACEUTICAL CO.-US-2015-10984

PATIENT

DRUGS (2)
  1. DACOGEN [Suspect]
     Active Substance: DECITABINE
     Dosage: 38 MG, QD
     Route: 042
     Dates: start: 20150115
  2. DACOGEN [Suspect]
     Active Substance: DECITABINE
     Indication: ACUTE MYELOID LEUKAEMIA
     Dosage: NO DRUG GIVEN, UNKNOWN
     Route: 042

REACTIONS (2)
  - Fungal infection [Recovered/Resolved with Sequelae]
  - Febrile neutropenia [Recovered/Resolved]

NARRATIVE: CASE EVENT DATE: 20150127
